FAERS Safety Report 19012494 (Version 1)
Quarter: 2021Q1

REPORT INFORMATION
  Report Type: Spontaneous
  Country: US (occurrence: US)
  Receive Date: 20210315
  Receipt Date: 20210315
  Transmission Date: 20210420
  Serious: Yes (Other)
  Sender: FDA-Public Use
  Company Number: US-AMGEN-USASP2021037386

PATIENT
  Age: 21 Year
  Sex: Male

DRUGS (3)
  1. BLINATUMOMAB [Suspect]
     Active Substance: BLINATUMOMAB
     Dosage: 30 MICROGRAM/SQ. METER, QD
     Route: 065
  2. BLINATUMOMAB [Suspect]
     Active Substance: BLINATUMOMAB
     Indication: PRIMARY MEDIASTINAL LARGE B-CELL LYMPHOMA
     Dosage: 10 MICROGRAM/SQ. METER, QD
     Route: 065
  3. BLINATUMOMAB [Suspect]
     Active Substance: BLINATUMOMAB
     Dosage: 15 MICROGRAM/SQ. METER, QD
     Route: 065

REACTIONS (10)
  - Acute graft versus host disease in intestine [Recovering/Resolving]
  - Chronic graft versus host disease in eye [Recovering/Resolving]
  - Acute graft versus host disease in skin [Recovering/Resolving]
  - Pancytopenia [Recovered/Resolved]
  - Graft versus host disease in lung [Recovering/Resolving]
  - Chronic graft versus host disease in skin [Recovering/Resolving]
  - Hypoalbuminaemia [Recovered/Resolved]
  - Primary mediastinal large B-cell lymphoma recurrent [Recovered/Resolved]
  - Off label use [Unknown]
  - Drug ineffective for unapproved indication [Unknown]
